FAERS Safety Report 23358987 (Version 1)
Quarter: 2024Q1

REPORT INFORMATION
  Report Type: Spontaneous
  Country: CN (occurrence: CN)
  Receive Date: 20240102
  Receipt Date: 20240102
  Transmission Date: 20240410
  Serious: Yes (Hospitalization)
  Sender: FDA-Public Use
  Company Number: CN-PFIZER INC-PV202300207218

PATIENT
  Age: 11 Year
  Sex: Female
  Weight: 39 kg

DRUGS (7)
  1. METHOTREXATE SODIUM [Suspect]
     Active Substance: METHOTREXATE SODIUM
     Indication: Acute leukaemia
     Dosage: 500 MG, 1X/DAY
     Dates: start: 20230926, end: 20230926
  2. METHOTREXATE SODIUM [Suspect]
     Active Substance: METHOTREXATE SODIUM
     Dosage: 5700 MG, 1X/DAY
     Dates: start: 20230926, end: 20230926
  3. PEGASPARGASE [Suspect]
     Active Substance: PEGASPARGASE
     Indication: Acute leukaemia
     Dosage: 3100 IU, 1X/DAY
     Route: 030
     Dates: start: 20231001, end: 20231001
  4. CYCLOPHOSPHAMIDE [Suspect]
     Active Substance: CYCLOPHOSPHAMIDE
     Indication: Acute leukaemia
     Dosage: 0.248 G, 2X/DAY
     Dates: start: 20230927, end: 20230927
  5. CYTARABINE HYDROCHLORIDE [Suspect]
     Active Substance: CYTARABINE HYDROCHLORIDE
     Indication: Acute leukaemia
     Dosage: 2480 MG, 2X/DAY
     Dates: start: 20230930, end: 20230930
  6. VANCOMYCIN HYDROCHLORIDE [Suspect]
     Active Substance: VANCOMYCIN HYDROCHLORIDE
     Indication: Acute leukaemia
     Dosage: 0.375 G, 4X/DAY
     Dates: start: 20231009, end: 20231015
  7. MEROPENEM [Suspect]
     Active Substance: MEROPENEM
     Indication: Acute leukaemia
     Dosage: 1 G, 3X/DAY
     Dates: start: 20231008, end: 20231010

REACTIONS (1)
  - Liver injury [Unknown]

NARRATIVE: CASE EVENT DATE: 20231017
